FAERS Safety Report 6382389-X (Version None)
Quarter: 2009Q3

REPORT INFORMATION
  Report Type: 
  Country: None (occurrence: None)
  Receive Date: 20090930
  Receipt Date: 20090917
  Transmission Date: 20100115
  Serious: Yes (Other)
  Sender: FDA-Public Use
  Company Number: US-PFIZER INC-2009262804

PATIENT
  Sex: Female
  Weight: 53.523 kg

DRUGS (7)
  1. ALPRAZOLAM [Suspect]
     Indication: DEPRESSION
     Dosage: UNK
     Dates: start: 20070301
  2. ALPRAZOLAM [Suspect]
     Indication: ANXIETY
  3. ALPRAZOLAM [Suspect]
     Indication: PANIC ATTACK
  4. PERCOCET [Suspect]
  5. ATIVAN [Suspect]
     Dosage: UNK
     Route: 048
  6. NEXIUM [Concomitant]
     Dosage: UNK
     Route: 048
  7. OXYCODONE HCL [Concomitant]
     Dosage: UNK
     Route: 048

REACTIONS (18)
  - AGITATION [None]
  - ANTISOCIAL BEHAVIOUR [None]
  - ANXIETY [None]
  - CONSTIPATION [None]
  - DEMENTIA [None]
  - DEPRESSION [None]
  - DIARRHOEA [None]
  - DRUG INEFFECTIVE [None]
  - DYSPNOEA [None]
  - FEAR [None]
  - FEELING DRUNK [None]
  - GAIT DISTURBANCE [None]
  - HYPERVENTILATION [None]
  - OROPHARYNGEAL DISCOMFORT [None]
  - PANIC ATTACK [None]
  - SPEECH DISORDER [None]
  - SWELLING [None]
  - TREMOR [None]
